FAERS Safety Report 18302288 (Version 3)
Quarter: 2021Q3

REPORT INFORMATION
  Report Type: Spontaneous
  Country: US (occurrence: US)
  Receive Date: 20200923
  Receipt Date: 20210716
  Transmission Date: 20211014
  Serious: Yes (Other)
  Sender: FDA-Public Use
  Company Number: US-STRIDES ARCOLAB LIMITED-2020SP011379

PATIENT
  Age: 49 Year
  Sex: Female

DRUGS (2)
  1. RANITIDINE. [Suspect]
     Active Substance: RANITIDINE
     Indication: GASTROOESOPHAGEAL REFLUX DISEASE
     Dosage: UNK (RANITIDINE); DAILY
     Route: 048
     Dates: start: 199801, end: 201901
  2. RANITIDINE. [Suspect]
     Active Substance: RANITIDINE
     Dosage: UNK (ZANTAC); DAILY
     Route: 048
     Dates: start: 199801, end: 201901

REACTIONS (4)
  - Gastrointestinal carcinoma [Unknown]
  - Colorectal cancer [Unknown]
  - Colorectal cancer [Unknown]
  - Anal cancer [Unknown]

NARRATIVE: CASE EVENT DATE: 20170803
